FAERS Safety Report 8443134-7 (Version None)
Quarter: 2012Q2

REPORT INFORMATION
  Report Type: 
  Country: None (occurrence: None)
  Receive Date: 20120615
  Receipt Date: 20120613
  Transmission Date: 20120825
  Serious: Yes (Other)
  Sender: FDA-Public Use
  Company Number: CN-MERCK-1206USA02345

PATIENT
  Age: 82 Year
  Sex: Male
  Weight: 65 kg

DRUGS (7)
  1. ZOCOR [Suspect]
     Indication: HYPERCHOLESTEROLAEMIA
     Route: 048
     Dates: end: 20120101
  2. METOPROLOL [Concomitant]
     Route: 065
  3. ZOCOR [Suspect]
     Indication: CORONARY ARTERY DISEASE
     Route: 048
     Dates: end: 20120101
  4. ACARBOSE [Concomitant]
     Route: 065
  5. INSULIN [Concomitant]
     Route: 065
  6. ASPIRIN [Concomitant]
     Route: 065
  7. LEVOTHYROXINE SODIUM [Concomitant]
     Route: 065

REACTIONS (5)
  - BLOOD CREATINE PHOSPHOKINASE INCREASED [None]
  - DRUG-INDUCED LIVER INJURY [None]
  - ALANINE AMINOTRANSFERASE INCREASED [None]
  - ASPARTATE AMINOTRANSFERASE INCREASED [None]
  - MYOPATHY [None]
